FAERS Safety Report 19929517 (Version 1)
Quarter: 2021Q4

REPORT INFORMATION
  Report Type: Spontaneous
  Country: CN (occurrence: CN)
  Receive Date: 20211007
  Receipt Date: 20211007
  Transmission Date: 20220303
  Serious: Yes (Hospitalization)
  Sender: FDA-Public Use
  Company Number: CN-PFIZER INC-202101266007

PATIENT
  Age: 88 Year
  Sex: Male
  Weight: 56 kg

DRUGS (1)
  1. PIPERACILLIN SODIUM\TAZOBACTAM SODIUM [Suspect]
     Active Substance: PIPERACILLIN SODIUM\TAZOBACTAM SODIUM
     Indication: Anti-infective therapy
     Dosage: 4.5 G, 2X/DAY
     Route: 041
     Dates: start: 20210923, end: 20210923

REACTIONS (12)
  - Anaphylactoid reaction [Recovering/Resolving]
  - Chills [Recovering/Resolving]
  - Pruritus [Recovering/Resolving]
  - Cough [Recovering/Resolving]
  - Productive cough [Recovering/Resolving]
  - Blood pressure decreased [Recovering/Resolving]
  - Rash [Recovering/Resolving]
  - Breath sounds abnormal [Recovering/Resolving]
  - Rales [Recovering/Resolving]
  - Heart rate irregular [Recovering/Resolving]
  - Extrasystoles [Recovering/Resolving]
  - Blood pressure fluctuation [Recovering/Resolving]

NARRATIVE: CASE EVENT DATE: 20210923
